FAERS Safety Report 10223194 (Version 1)
Quarter: 2014Q2

REPORT INFORMATION
  Report Type: Spontaneous
  Country: US (occurrence: None)
  Receive Date: 20140606
  Receipt Date: 20140606
  Transmission Date: 20141212
  Serious: Yes (Other)
  Sender: FDA-Public Use
  Company Number: None

PATIENT
  Age: 02 Month
  Sex: Male

DRUGS (7)
  1. CYCLOMYDRIL [Suspect]
     Indication: INVESTIGATION
     Dosage: 1 DROP, Q 5 MINS X 3, OPHTHALMIC
     Route: 047
  2. CYCLOMYDRIL [Suspect]
     Indication: RETINOPATHY OF PREMATURITY
     Dosage: 1 DROP, Q 5 MINS X 3, OPHTHALMIC
     Route: 047
  3. TETRACAINE [Suspect]
     Indication: INVESTIGATION
     Dosage: 1 DROP, TO BOTH EYE, OPHTHALMIC
     Route: 047
  4. TETRACAINE [Suspect]
     Indication: RETINOPATHY OF PREMATURITY
     Dosage: 1 DROP, TO BOTH EYE, OPHTHALMIC
     Route: 047
  5. ELEMENTAL IRON [Concomitant]
  6. MEDIUM CHAIN TRIGLYCERIDES [Concomitant]
  7. MULTIPLE VITAMIN [Concomitant]

REACTIONS (1)
  - Apnoea [None]
